FAERS Safety Report 21853162 (Version 1)
Quarter: 2023Q1

REPORT INFORMATION
  Report Type: Spontaneous
  Country: US (occurrence: US)
  Receive Date: 20230112
  Receipt Date: 20230112
  Transmission Date: 20230418
  Serious: Yes (Hospitalization)
  Sender: FDA-Public Use
  Company Number: US-STRIDES ARCOLAB LIMITED-2023SP000415

PATIENT
  Age: 63 Year
  Sex: Male

DRUGS (1)
  1. GLYBURIDE [Suspect]
     Active Substance: GLYBURIDE
     Indication: Product used for unknown indication
     Dosage: UNK; TOOK 5-10 TIMES THE STANDARD THERAPEUTIC DOSES (TABLET)
     Route: 065

REACTIONS (3)
  - Intentional product misuse [Unknown]
  - Intentional overdose [Unknown]
  - Hypoglycaemia [Not Recovered/Not Resolved]
